FAERS Safety Report 24209099 (Version 1)
Quarter: 2024Q3

REPORT INFORMATION
  Report Type: Spontaneous
  Country: US (occurrence: US)
  Receive Date: 20240814
  Receipt Date: 20240814
  Transmission Date: 20241017
  Serious: No
  Sender: SANOFI AVENTIS
  Company Number: US-SA-SAC20240808000263

PATIENT
  Sex: Female
  Weight: 12.247 kg

DRUGS (1)
  1. DUPIXENT [Suspect]
     Active Substance: DUPILUMAB
     Indication: Dermatitis allergic
     Dosage: 200 MG, QM
     Route: 058

REACTIONS (3)
  - Rash macular [Unknown]
  - Movement disorder [Unknown]
  - Product dose omission issue [Unknown]
